FAERS Safety Report 7141907-4 (Version None)
Quarter: 2010Q4

REPORT INFORMATION
  Report Type: 
  Country: None (occurrence: None)
  Receive Date: 20101203
  Receipt Date: 20101203
  Transmission Date: 20110411
  Serious: Yes (Life-Threatening, Hospitalization, Other)
  Sender: FDA-Public Use
  Company Number: None

PATIENT
  Sex: Female
  Weight: 57.1532 kg

DRUGS (2)
  1. STELARA [Suspect]
     Indication: PSORIASIS
     Dosage: 90 MG ONCE T_____ SQ ; 90 MG 4 WEEKS TOTAL
     Route: 058
     Dates: start: 20090801
  2. STELARA [Suspect]
     Indication: PSORIASIS
     Dosage: 90 MG ONCE T_____ SQ ; 90 MG 4 WEEKS TOTAL
     Route: 058
     Dates: start: 20090901

REACTIONS (6)
  - CASTLEMAN'S DISEASE [None]
  - CHOLECYSTITIS [None]
  - DIABETES MELLITUS INADEQUATE CONTROL [None]
  - LYMPHADENECTOMY [None]
  - PANCREATITIS [None]
  - THYROID CANCER [None]
